FAERS Safety Report 24525986 (Version 1)
Quarter: 2024Q4

REPORT INFORMATION
  Report Type: Spontaneous
  Country: US (occurrence: US)
  Receive Date: 20241020
  Receipt Date: 20241020
  Transmission Date: 20250114
  Serious: No
  Sender: BOEHRINGER INGELHEIM
  Company Number: US-Komodo Health-a23aa000003lU2XAAU

PATIENT
  Age: 69 Year
  Sex: Female

DRUGS (1)
  1. SPIRIVA RESPIMAT [Suspect]
     Active Substance: TIOTROPIUM BROMIDE
     Indication: Asthma
     Dosage: FORM STRENGTH: 2.5 MICROGRAM
     Dates: start: 2016

REACTIONS (1)
  - Spondylitis [Not Recovered/Not Resolved]
